FAERS Safety Report 14291826 (Version 1)
Quarter: 2017Q4

REPORT INFORMATION
  Report Type: Spontaneous
  Country: DE (occurrence: DE)
  Receive Date: 20171215
  Receipt Date: 20171215
  Transmission Date: 20180321
  Serious: Yes (Other)
  Sender: FDA-Public Use
  Company Number: DE-JNJFOC-20171219390

PATIENT
  Age: 89 Year
  Sex: Female

DRUGS (1)
  1. XARELTO [Suspect]
     Active Substance: RIVAROXABAN
     Indication: ATRIAL FIBRILLATION
     Dosage: 15 MG FOR 3 YEARS
     Route: 048

REACTIONS (4)
  - Haemorrhage [Recovered/Resolved]
  - Blister rupture [Recovered/Resolved]
  - Cardiovascular disorder [Unknown]
  - Haematuria [Recovering/Resolving]
